FAERS Safety Report 4410641-3 (Version None)
Quarter: 2004Q3

REPORT INFORMATION
  Report Type: 
  Country: None (occurrence: None)
  Receive Date: 20040728
  Receipt Date: 20040728
  Transmission Date: 20050211
  Serious: Yes (Hospitalization)
  Sender: FDA-Public Use
  Company Number: None

PATIENT
  Age: 61 Year
  Sex: Male
  Weight: 89.3586 kg

DRUGS (18)
  1. ESTRAMUSTINE 140 MG PO BID [Suspect]
     Indication: PROSTATE CANCER METASTATIC
     Dosage: 140 MG PO BID
     Route: 048
     Dates: start: 20040524, end: 20040528
  2. ESTRAMUSTINE 140 MG PO BID [Suspect]
     Indication: PROSTATE CANCER METASTATIC
     Dosage: 140 MG PO BID
     Route: 048
     Dates: start: 20040531, end: 20040604
  3. ESTRAMUSTINE 140 MG PO BID [Suspect]
     Indication: PROSTATE CANCER METASTATIC
     Dosage: 140 MG PO BID
     Route: 048
     Dates: start: 20040607, end: 20040619
  4. ESTRAMUSTINE 140 MG PO BID [Suspect]
     Indication: PROSTATE CANCER METASTATIC
     Dosage: 140 MG PO BID
     Route: 048
     Dates: start: 20040628, end: 20040702
  5. ESTRAMUSTINE 140 MG PO BID [Suspect]
     Indication: PROSTATE CANCER METASTATIC
     Dosage: 140 MG PO BID
     Route: 048
     Dates: start: 20040705, end: 20040709
  6. ESTRAMUSTINE 140 MG PO BID [Suspect]
     Indication: PROSTATE CANCER METASTATIC
     Dosage: 140 MG PO BID
     Route: 048
     Dates: start: 20040712, end: 20040716
  7. ESTRAMUSTINE 140 MG PO BID [Suspect]
     Indication: PROSTATE CANCER METASTATIC
     Dosage: 140 MG PO BID
     Route: 048
     Dates: start: 20040719, end: 20040723
  8. ESTRAMUSTINE 140 MG PO BID [Suspect]
     Indication: PROSTATE CANCER METASTATIC
     Dosage: 140 MG PO BID
     Route: 048
     Dates: start: 20040727
  9. TAXOTERE [Suspect]
     Indication: PROSTATE CANCER METASTATIC
     Dosage: TAXOTERE 40 MG M2 D2
     Dates: start: 20040503, end: 20040507
  10. TAXOTERE [Suspect]
     Indication: PROSTATE CANCER METASTATIC
     Dosage: TAXOTERE 40 MG M2 D2
     Dates: start: 20040510, end: 20040514
  11. TAXOTERE [Suspect]
     Indication: PROSTATE CANCER METASTATIC
     Dosage: TAXOTERE 40 MG M2 D2
     Dates: start: 20040517, end: 20040521
  12. TAXOTERE [Suspect]
     Indication: PROSTATE CANCER METASTATIC
     Dosage: TAXOTERE 40 MG M2 D2
     Dates: start: 20040518, end: 20040525
  13. TAXOTERE [Suspect]
     Indication: PROSTATE CANCER METASTATIC
     Dosage: TAXOTERE 40 MG M2 D2
     Dates: start: 20040601
  14. TAXOTERE [Suspect]
     Indication: PROSTATE CANCER METASTATIC
     Dosage: TAXOTERE 40 MG M2 D2
     Dates: start: 20040608
  15. TAXOTERE [Suspect]
     Indication: PROSTATE CANCER METASTATIC
     Dosage: TAXOTERE 40 MG M2 D2
     Dates: start: 20040629
  16. TAXOTERE [Suspect]
     Indication: PROSTATE CANCER METASTATIC
     Dosage: TAXOTERE 40 MG M2 D2
     Dates: start: 20040706
  17. TAXOTERE [Suspect]
     Indication: PROSTATE CANCER METASTATIC
     Dosage: TAXOTERE 40 MG M2 D2
     Dates: start: 20040713
  18. TAXOTERE [Suspect]
     Indication: PROSTATE CANCER METASTATIC
     Dosage: TAXOTERE 40 MG M2 D2
     Dates: start: 20040720

REACTIONS (2)
  - LOBAR PNEUMONIA [None]
  - LUNG DISORDER [None]
